FAERS Safety Report 9838885 (Version 1)
Quarter: 2014Q1

REPORT INFORMATION
  Report Type: Spontaneous
  Country: US (occurrence: None)
  Receive Date: 20140117
  Receipt Date: 20140117
  Transmission Date: 20141002
  Serious: Yes (Other)
  Sender: FDA-Public Use
  Company Number: None

PATIENT
  Age: 61 Year
  Sex: Male
  Weight: 66.68 kg

DRUGS (2)
  1. METHOTREXATE 2.5MG VI PO QWEEK [Suspect]
     Indication: RHEUMATOID ARTHRITIS
     Dosage: MULTIPLE YEARS
  2. HYDROXYCHLOROQUINE 200MG PO BID [Suspect]

REACTIONS (1)
  - B-cell lymphoma [None]
